FAERS Safety Report 13205923 (Version 1)
Quarter: 2017Q1

REPORT INFORMATION
  Report Type: Spontaneous
  Country: FR (occurrence: FR)
  Receive Date: 20170209
  Receipt Date: 20170209
  Transmission Date: 20170428
  Serious: Yes (Hospitalization)
  Sender: FDA-Public Use
  Company Number: FR-ASTRAZENECA-2017SE13256

PATIENT
  Age: 1 Day
  Sex: Male
  Weight: 3.2 kg

DRUGS (3)
  1. XEROQUEL [Suspect]
     Active Substance: QUETIAPINE FUMARATE
     Route: 064
     Dates: end: 20160619
  2. LEXOMIL [Suspect]
     Active Substance: BROMAZEPAM
     Route: 064
     Dates: end: 20140619
  3. METHADONE [Suspect]
     Active Substance: METHADONE HYDROCHLORIDE
     Route: 064
     Dates: end: 20140619

REACTIONS (7)
  - Cyanosis [Recovered/Resolved]
  - Talipes [Recovered/Resolved]
  - Agitation neonatal [Recovered/Resolved]
  - Hypertonia [Recovered/Resolved]
  - Withdrawal syndrome [Recovered/Resolved]
  - Jaundice neonatal [Unknown]
  - Tremor [Recovered/Resolved]

NARRATIVE: CASE EVENT DATE: 20140625
